FAERS Safety Report 19678200 (Version 7)
Quarter: 2025Q2

REPORT INFORMATION
  Report Type: Report from Study
  Country: AR (occurrence: AR)
  Receive Date: 20210810
  Receipt Date: 20250513
  Transmission Date: 20250717
  Serious: Yes (Hospitalization, Other)
  Sender: NOVARTIS
  Company Number: AR-NOVARTISPH-NVSC2021AR175989

PATIENT
  Age: 59 Year
  Sex: Male

DRUGS (2)
  1. COSENTYX [Suspect]
     Active Substance: SECUKINUMAB
     Indication: Axial spondyloarthritis
     Dosage: 300 MG, QMO
     Route: 058
     Dates: start: 20190826
  2. COSENTYX [Suspect]
     Active Substance: SECUKINUMAB
     Indication: Ankylosing spondylitis
     Dosage: 300 MG, QMO
     Route: 058

REACTIONS (16)
  - Pneumonia [Recovered/Resolved]
  - Pyrexia [Unknown]
  - Ankylosing spondylitis [Unknown]
  - Back pain [Unknown]
  - Arthralgia [Unknown]
  - Pain [Unknown]
  - Arthritis [Unknown]
  - Illness [Unknown]
  - Gait disturbance [Unknown]
  - Kyphosis [Unknown]
  - Pain in extremity [Unknown]
  - Product distribution issue [Unknown]
  - Joint stiffness [Unknown]
  - Inflammation [Unknown]
  - Arthropathy [Unknown]
  - Spinal deformity [Unknown]

NARRATIVE: CASE EVENT DATE: 20210711
